FAERS Safety Report 5965331-2 (Version None)
Quarter: 2008Q4

REPORT INFORMATION
  Report Type: 
  Country: None (occurrence: None)
  Receive Date: 20081125
  Receipt Date: 20081113
  Transmission Date: 20090506
  Serious: Yes (Hospitalization, Disabling)
  Sender: FDA-Public Use
  Company Number: BR-ROCHE-536599

PATIENT
  Sex: Male
  Weight: 65 kg

DRUGS (3)
  1. PEG-INTERFERON ALFA 2A (RO 25-8310) [Suspect]
     Dosage: DOSAGE FORM REPORTED AS AMP. DOSE REPORTED AS ^1 AMP^
     Route: 058
     Dates: start: 20061110, end: 20071026
  2. RIBAVIRIN [Suspect]
     Dosage: DOSE REPORTED AS ^2 CAP^
     Route: 048
     Dates: start: 20061110, end: 20071026
  3. VITAMIN B [Concomitant]

REACTIONS (2)
  - CANDIDIASIS [None]
  - CYTOMEGALOVIRUS OESOPHAGITIS [None]
